FAERS Safety Report 20263344 (Version 1)
Quarter: 2021Q4

REPORT INFORMATION
  Report Type: Report from Study
  Country: US (occurrence: US)
  Receive Date: 20211231
  Receipt Date: 20211231
  Transmission Date: 20220303
  Serious: Yes (Hospitalization, Other)
  Sender: FDA-Public Use
  Company Number: US-JNJFOC-20211253824

PATIENT
  Age: 85 Year
  Sex: Female

DRUGS (1)
  1. VELCADE [Suspect]
     Active Substance: BORTEZOMIB
     Indication: Plasma cell myeloma
     Dosage: UNK
     Route: 058

REACTIONS (5)
  - Diarrhoea haemorrhagic [Unknown]
  - Leukopenia [Unknown]
  - Thrombocytopenia [Unknown]
  - Hypotension [Unknown]
  - Adrenal insufficiency [Unknown]
